FAERS Safety Report 5479327-0 (Version None)
Quarter: 2007Q4

REPORT INFORMATION
  Report Type: 
  Country: None (occurrence: None)
  Receive Date: 20071008
  Receipt Date: 20070928
  Transmission Date: 20080405
  Serious: Yes (Death, Other)
  Sender: FDA-Public Use
  Company Number: HQWYE357022JUL04

PATIENT
  Sex: Female

DRUGS (1)
  1. PREMPRO [Suspect]

REACTIONS (4)
  - CERVIX CARCINOMA [None]
  - ENDOMETRIAL CANCER RECURRENT [None]
  - OVARIAN CANCER [None]
  - UTERINE CANCER [None]
